FAERS Safety Report 18876461 (Version 1)
Quarter: 2021Q1

REPORT INFORMATION
  Report Type: Report from Study
  Country: US (occurrence: US)
  Receive Date: 20210211
  Receipt Date: 20210211
  Transmission Date: 20210420
  Serious: Yes (Other)
  Sender: FDA-Public Use
  Company Number: US-EMD SERONO-9159289

PATIENT
  Age: 77 Year
  Sex: Female

DRUGS (2)
  1. REBIF [Suspect]
     Active Substance: INTERFERON BETA-1A
     Indication: PRODUCT USED FOR UNKNOWN INDICATION
     Dosage: REBIF PREFILLED SYRINGE
     Route: 058
     Dates: start: 20180925
  2. DOXYCYCLINE. [Suspect]
     Active Substance: DOXYCYCLINE
     Indication: SINONASAL OBSTRUCTION
     Dates: start: 2020

REACTIONS (6)
  - Eye movement disorder [Unknown]
  - Headache [Unknown]
  - Visual impairment [Unknown]
  - Dysphonia [Recovering/Resolving]
  - Sinonasal obstruction [Unknown]
  - Cataract operation [Unknown]

NARRATIVE: CASE EVENT DATE: 2020
